FAERS Safety Report 10064579 (Version 1)
Quarter: 2014Q1

REPORT INFORMATION
  Report Type: Spontaneous
  Country: US (occurrence: None)
  Receive Date: 20140328
  Receipt Date: 20140328
  Transmission Date: 20141002
  Serious: No
  Sender: FDA-Public Use
  Company Number: 1000052832

PATIENT
  Age: 57 Year
  Sex: Female

DRUGS (3)
  1. LINZESS (LINACLOTIDE) (290 MICROGRAM, CAPSULES) [Suspect]
     Indication: IRRITABLE BOWEL SYNDROME
     Dosage: 290MCG (290 MCG, 1 IN 1 D), ORAL
     Route: 048
     Dates: start: 201310
  2. CRESTOR (ROSUVASTATIN CALCIUM) [Concomitant]
     Indication: GASTROOESOPHAGEAL REFLUX DISEASE
  3. DEXILANT (DEXLANSOPRAZOLE) [Concomitant]

REACTIONS (1)
  - Drug ineffective [None]
